FAERS Safety Report 8369049-0 (Version None)
Quarter: 2012Q2

REPORT INFORMATION
  Report Type: 
  Country: None (occurrence: None)
  Receive Date: 20120516
  Receipt Date: 20120516
  Transmission Date: 20120825
  Serious: Yes (Other)
  Sender: FDA-Public Use
  Company Number: None

PATIENT
  Age: 27 Year
  Sex: Female
  Weight: 43.5453 kg

DRUGS (2)
  1. CYMBALTA [Suspect]
     Indication: FIBROMYALGIA
     Dosage: 60MG BID PO 30MG QD PO
     Route: 048
  2. CYMBALTA [Suspect]
     Indication: CHRONIC FATIGUE SYNDROME
     Dosage: 60MG BID PO 30MG QD PO
     Route: 048

REACTIONS (18)
  - DRUG WITHDRAWAL SYNDROME [None]
  - MOOD SWINGS [None]
  - PAIN IN EXTREMITY [None]
  - DISTURBANCE IN ATTENTION [None]
  - NECK PAIN [None]
  - IMPAIRED DRIVING ABILITY [None]
  - DYSPNOEA [None]
  - VERTIGO [None]
  - MUSCLE SPASMS [None]
  - BACK PAIN [None]
  - ANGER [None]
  - THINKING ABNORMAL [None]
  - HYPOAESTHESIA ORAL [None]
  - HYPOAESTHESIA [None]
  - PALPITATIONS [None]
  - ASTHENIA [None]
  - CONSTIPATION [None]
  - MEMORY IMPAIRMENT [None]
